FAERS Safety Report 8170247-X (Version None)
Quarter: 2012Q1

REPORT INFORMATION
  Report Type: 
  Country: None (occurrence: None)
  Receive Date: 20120228
  Receipt Date: 20120223
  Transmission Date: 20120608
  Serious: Yes (Death)
  Sender: FDA-Public Use
  Company Number: PHHY2012CO015981

PATIENT
  Sex: Male

DRUGS (3)
  1. CALCIUM CARBONATE W/VITAMIN D NOS [Concomitant]
     Dosage: TWO TABS PER DAY
  2. ZOLEDRONOC ACID [Suspect]
     Dosage: 5 MG/100 ML YEARLY
     Route: 042
  3. CALCITRIOL [Concomitant]
     Dosage: TWO  TABS PER DAY

REACTIONS (2)
  - HEPATIC NEOPLASM [None]
  - GENERAL PHYSICAL HEALTH DETERIORATION [None]
